FAERS Safety Report 7822924-5 (Version None)
Quarter: 2011Q4

REPORT INFORMATION
  Report Type: 
  Country: None (occurrence: None)
  Receive Date: 20111018
  Receipt Date: 20110317
  Transmission Date: 20120403
  Serious: No
  Sender: FDA-Public Use
  Company Number: US-ASTRAZENECA-2011SE15190

PATIENT
  Age: 67 Year
  Sex: Female

DRUGS (2)
  1. PROAIR HFA [Concomitant]
  2. SYMBICORT [Suspect]
     Dosage: 160 MCG DAILY
     Route: 055
     Dates: start: 20090101

REACTIONS (2)
  - HYPOGEUSIA [None]
  - HYPOSMIA [None]
